FAERS Safety Report 7653776-4 (Version None)
Quarter: 2011Q3

REPORT INFORMATION
  Report Type: 
  Country: None (occurrence: None)
  Receive Date: 20110803
  Receipt Date: 20110719
  Transmission Date: 20111222
  Serious: Yes (Hospitalization)
  Sender: FDA-Public Use
  Company Number: JP-GLAXOSMITHKLINE-B0734389A

PATIENT
  Sex: Female

DRUGS (5)
  1. SEFTAC [Concomitant]
     Dosage: 50MG PER DAY
     Route: 048
  2. ONEALFA [Concomitant]
     Dosage: .5MG PER DAY
     Route: 048
  3. VALTREX [Suspect]
     Indication: HERPES ZOSTER
     Dosage: 3000MG PER DAY
     Route: 048
     Dates: start: 20110714, end: 20110716
  4. LORFENAMIN [Concomitant]
     Dosage: 60MG PER DAY
     Route: 048
  5. CALCIUM CARBONATE [Concomitant]
     Dosage: 1500MG PER DAY
     Route: 048

REACTIONS (3)
  - GAIT DISTURBANCE [None]
  - MUSCULAR WEAKNESS [None]
  - DYSARTHRIA [None]
